FAERS Safety Report 10185066 (Version 1)
Quarter: 2014Q2

REPORT INFORMATION
  Report Type: Spontaneous
  Country: BG (occurrence: None)
  Receive Date: 20140519
  Receipt Date: 20140519
  Transmission Date: 20141212
  Serious: Yes (Hospitalization)
  Sender: FDA-Public Use
  Company Number: IMP_07643_2014

PATIENT
  Age: 14 Month
  Sex: Male

DRUGS (1)
  1. VALPROIC ACID (VALPROIC ACID) [Suspect]
     Indication: PRODUCT USED FOR UNKNOWN INDICATION
     Dosage: UNKNOWN

REACTIONS (4)
  - Somnolence [None]
  - Apathy [None]
  - General physical health deterioration [None]
  - Accidental exposure to product by child [None]
